FAERS Safety Report 25750453 (Version 1)
Quarter: 2025Q3

REPORT INFORMATION
  Report Type: Spontaneous
  Country: US (occurrence: US)
  Receive Date: 20250902
  Receipt Date: 20250902
  Transmission Date: 20251020
  Serious: No
  Sender: TAKEDA
  Company Number: US-TAKEDA-2022TUS085314

PATIENT
  Sex: Female

DRUGS (20)
  1. ENTYVIO [Suspect]
     Active Substance: VEDOLIZUMAB
     Indication: Colitis ulcerative
  2. ENTYVIO [Suspect]
     Active Substance: VEDOLIZUMAB
  3. APRISO [Concomitant]
     Active Substance: MESALAMINE
  4. ASPIRIN [Concomitant]
     Active Substance: ASPIRIN
  5. ATORVASTATIN CALCIUM [Concomitant]
     Active Substance: ATORVASTATIN CALCIUM
  6. CANASA [Concomitant]
     Active Substance: MESALAMINE
  7. FLONASE ALLERGY RELIEF [Concomitant]
     Active Substance: FLUTICASONE PROPIONATE
  8. ACETAMINOPHEN\HYDROCODONE [Concomitant]
     Active Substance: ACETAMINOPHEN\HYDROCODONE
  9. IBUPROFEN [Concomitant]
     Active Substance: IBUPROFEN
  10. MELOXICAM [Concomitant]
     Active Substance: MELOXICAM
  11. NABUMETONE [Concomitant]
     Active Substance: NABUMETONE
  12. NAPROXEN [Concomitant]
     Active Substance: NAPROXEN
  13. VITAMIN C [Concomitant]
     Active Substance: ASCORBIC ACID
  14. VITAMIN E [Concomitant]
     Active Substance: .ALPHA.-TOCOPHEROL
  15. AMLODIPINE\HYDROCHLOROTHIAZIDE\VALSARTAN [Concomitant]
     Active Substance: AMLODIPINE\HYDROCHLOROTHIAZIDE\VALSARTAN
  16. LEVOCETIRIZINE DIHYDROCHLORIDE [Concomitant]
     Active Substance: LEVOCETIRIZINE DIHYDROCHLORIDE
  17. MONTELUKAST SODIUM [Concomitant]
     Active Substance: MONTELUKAST SODIUM
  18. Super c [Concomitant]
  19. BENADRYL ALLERGY [Concomitant]
     Active Substance: DIPHENHYDRAMINE HYDROCHLORIDE
  20. ASPIRIN [Concomitant]
     Active Substance: ASPIRIN

REACTIONS (2)
  - COVID-19 [Recovered/Resolved]
  - Blood pressure increased [Unknown]
